FAERS Safety Report 4788746-7 (Version None)
Quarter: 2005Q3

REPORT INFORMATION
  Report Type: 
  Country: None (occurrence: None)
  Receive Date: 20050915
  Receipt Date: 20050603
  Transmission Date: 20060218
  Serious: No
  Sender: FDA-Public Use
  Company Number: BDI-007283

PATIENT
  Age: 24 Year
  Sex: Female

DRUGS (1)
  1. MULTIHANCE [Suspect]
     Indication: NUCLEAR MAGNETIC RESONANCE IMAGING
     Dosage: 30 ML ONCE IV
     Route: 042
     Dates: start: 20050601, end: 20050601

REACTIONS (4)
  - COUGH [None]
  - ERYTHEMA [None]
  - SNEEZING [None]
  - SWELLING FACE [None]
